FAERS Safety Report 17788532 (Version 1)
Quarter: 2020Q2

REPORT INFORMATION
  Report Type: Spontaneous
  Country: US (occurrence: US)
  Receive Date: 20200514
  Receipt Date: 20200514
  Transmission Date: 20200714
  Serious: Yes (Hospitalization)
  Sender: FDA-Public Use
  Company Number: US-INCYTE CORPORATION-2020IN004196

PATIENT

DRUGS (1)
  1. JAKAFI [Suspect]
     Active Substance: RUXOLITINIB
     Indication: MYELOFIBROSIS
     Dosage: 10 MILLIGRAM ONCE PER DAY AFTER DIALYSIS (THREE TIMES WEEKLY)
     Route: 048
     Dates: start: 20190226, end: 20200402

REACTIONS (1)
  - Ill-defined disorder [Unknown]
